FAERS Safety Report 9484372 (Version 1)
Quarter: 2013Q3

REPORT INFORMATION
  Report Type: Report from Study
  Country: JP (occurrence: JP)
  Receive Date: 20130828
  Receipt Date: 20130828
  Transmission Date: 20140515
  Serious: Yes (Other)
  Sender: FDA-Public Use
  Company Number: JP-VERTEX PHARMACEUTICALS INC-2013-009074

PATIENT
  Age: 65 Year
  Sex: Female

DRUGS (9)
  1. VX-950 (TELAPREVIR) [Suspect]
     Indication: CHRONIC HEPATITIS C
     Dosage: 1500 MG, QD
     Route: 048
     Dates: start: 20120528, end: 20120701
  2. RIBAVIRIN [Suspect]
     Indication: CHRONIC HEPATITIS C
     Dosage: 400 MG, QD
     Route: 048
     Dates: start: 20120528, end: 20120625
  3. RIBAVIRIN [Suspect]
     Dosage: 200 MG, QD
     Route: 048
     Dates: start: 20120626, end: 20120701
  4. PEGINTERFERON ALFA-2B [Concomitant]
     Dosage: 1.5 ?G, QW
     Route: 058
     Dates: start: 20120528, end: 20120701
  5. URSO [Concomitant]
     Dosage: 900 MG, QD
     Route: 048
  6. NORVASC [Concomitant]
     Dosage: 5 MG, UNK
     Route: 048
  7. THYRADIN-S [Concomitant]
     Dosage: 50 ?G, QD
     Route: 048
  8. GASLON N [Concomitant]
     Dosage: 4 MG, QD
     Route: 048
  9. TALION [Concomitant]
     Dosage: 20 MG, QD
     Route: 048
     Dates: start: 20120528

REACTIONS (1)
  - Breast cancer [Not Recovered/Not Resolved]
